FAERS Safety Report 23945555 (Version 3)
Quarter: 2024Q3

REPORT INFORMATION
  Report Type: Spontaneous
  Country: GB (occurrence: GB)
  Receive Date: 20240606
  Receipt Date: 20240726
  Transmission Date: 20241016
  Serious: Yes (Hospitalization, Other)
  Sender: MYLAN
  Company Number: GB-MYLANLABS-2024M1050711

PATIENT
  Sex: Male

DRUGS (1)
  1. CLOZARIL [Suspect]
     Active Substance: CLOZAPINE
     Indication: Schizophrenia
     Dosage: UNK
     Route: 048
     Dates: start: 20210215

REACTIONS (4)
  - Hospitalisation [Unknown]
  - Schizophrenia [Unknown]
  - Eosinophilia [Unknown]
  - Therapy cessation [Unknown]
